FAERS Safety Report 8171171 (Version 5)
Quarter: 2013Q4

REPORT INFORMATION
  Report Type: Spontaneous
  Country: GB (occurrence: GB)
  Receive Date: 20111006
  Receipt Date: 20131218
  Transmission Date: 20140711
  Serious: Yes (Life-Threatening, Hospitalization, Disabling, Other)
  Sender: FDA-Public Use
  Company Number: GB-JNJFOC-20110905897

PATIENT
  Age: 30 Year
  Sex: Female
  Weight: 63.5 kg

DRUGS (24)
  1. TRAMADOL HYDROCHLORIDE [Suspect]
     Indication: ANALGESIC THERAPY
     Dosage: 50-100 MG QDS
     Route: 048
     Dates: start: 20110722
  2. TRAMADOL HYDROCHLORIDE [Suspect]
     Indication: ANALGESIC THERAPY
     Route: 048
     Dates: start: 20081201, end: 20101210
  3. TRAMADOL HYDROCHLORIDE [Suspect]
     Indication: ANALGESIC THERAPY
     Dosage: 50-100 MG QDS FOR 7 DAYS
     Route: 048
     Dates: start: 20080722
  4. TRAMADOL HYDROCHLORIDE [Suspect]
     Indication: NECK PAIN
     Dosage: 50-100 MG QDS FOR 7 DAYS
     Route: 048
     Dates: start: 20080722
  5. TRAMADOL HYDROCHLORIDE [Suspect]
     Indication: NECK PAIN
     Dosage: 50-100 MG QDS
     Route: 048
     Dates: start: 20110722
  6. TRAMADOL HYDROCHLORIDE [Suspect]
     Indication: NECK PAIN
     Route: 048
     Dates: start: 20081201, end: 20101210
  7. CLONAZEPAM [Suspect]
     Indication: SEDATION
     Route: 048
     Dates: start: 20110224, end: 20110410
  8. LORAZEPAM [Suspect]
     Indication: SEDATION
     Route: 065
     Dates: start: 20110523, end: 20110727
  9. MIRTAZAPINE [Suspect]
     Indication: DEPRESSION
     Dosage: 30 MG AND 15 MG AT NIGHT
     Route: 048
     Dates: start: 20100923, end: 20101108
  10. PROCYCLIDINE [Suspect]
     Indication: EXTRAPYRAMIDAL DISORDER
     Route: 048
     Dates: start: 20110503, end: 20110510
  11. QUETIAPINE [Suspect]
     Indication: PSYCHOTIC DISORDER
     Route: 048
     Dates: start: 20110224, end: 20110506
  12. SEROXAT [Interacting]
     Indication: PRODUCT USED FOR UNKNOWN INDICATION
     Route: 048
     Dates: end: 201105
  13. SEROXAT [Interacting]
     Indication: PRODUCT USED FOR UNKNOWN INDICATION
     Route: 048
     Dates: start: 19990801, end: 201105
  14. DOMPERIDONE [Suspect]
     Indication: PRODUCT USED FOR UNKNOWN INDICATION
     Route: 065
  15. OMEPRAZOLE [Suspect]
     Indication: DYSPEPSIA
     Route: 065
     Dates: start: 20110525
  16. ALL OTHER THERAPEUTIC PRODUCTS [Suspect]
     Indication: PRODUCT USED FOR UNKNOWN INDICATION
     Route: 065
  17. PAROXETINE [Interacting]
     Indication: POST-TRAUMATIC STRESS DISORDER
     Route: 048
     Dates: start: 19990801, end: 20110706
  18. PAROXETINE [Interacting]
     Indication: DEPRESSION
     Route: 048
     Dates: start: 19990801, end: 20110706
  19. AMITRIPTYLINE [Suspect]
     Indication: NEURALGIA
     Route: 065
     Dates: start: 20110810
  20. AMITRIPTYLINE [Suspect]
     Indication: MUSCLE SPASMS
     Route: 065
     Dates: start: 20110810
  21. CODEINE [Suspect]
     Indication: ANALGESIC THERAPY
     Route: 065
     Dates: start: 2008
  22. CODEINE [Suspect]
     Indication: ANALGESIC THERAPY
     Dosage: 15-30 MG QDS
     Route: 065
     Dates: start: 2002
  23. CODEINE [Suspect]
     Indication: ANALGESIC THERAPY
     Route: 065
     Dates: start: 20110615, end: 20110723
  24. DIAZEPAM [Suspect]
     Indication: MUSCLE SPASMS
     Route: 065
     Dates: start: 20110725

REACTIONS (45)
  - Serotonin syndrome [Not Recovered/Not Resolved]
  - Swollen tongue [Not Recovered/Not Resolved]
  - Contusion [Not Recovered/Not Resolved]
  - Toxicity to various agents [Not Recovered/Not Resolved]
  - Depersonalisation [Not Recovered/Not Resolved]
  - Hallucination [Not Recovered/Not Resolved]
  - Urinary retention [Not Recovered/Not Resolved]
  - Fatigue [Not Recovered/Not Resolved]
  - Tachycardia [Not Recovered/Not Resolved]
  - Convulsion [Not Recovered/Not Resolved]
  - Mood swings [Not Recovered/Not Resolved]
  - Drug withdrawal syndrome [Not Recovered/Not Resolved]
  - Delirium [Not Recovered/Not Resolved]
  - Speech disorder [Not Recovered/Not Resolved]
  - Agitation [Not Recovered/Not Resolved]
  - Anxiety [Not Recovered/Not Resolved]
  - Cyanosis [Not Recovered/Not Resolved]
  - Incontinence [Not Recovered/Not Resolved]
  - H1N1 influenza [Not Recovered/Not Resolved]
  - Muscle rigidity [Not Recovered/Not Resolved]
  - Paralysis [Not Recovered/Not Resolved]
  - Dystonia [Not Recovered/Not Resolved]
  - Feeling of body temperature change [Not Recovered/Not Resolved]
  - Eye pain [Not Recovered/Not Resolved]
  - Cogwheel rigidity [Not Recovered/Not Resolved]
  - Malaise [Not Recovered/Not Resolved]
  - Blood sodium decreased [Not Recovered/Not Resolved]
  - Pallor [Not Recovered/Not Resolved]
  - Depression [Not Recovered/Not Resolved]
  - Suicidal ideation [Not Recovered/Not Resolved]
  - Restlessness [Not Recovered/Not Resolved]
  - Visual impairment [Not Recovered/Not Resolved]
  - Confusional state [Not Recovered/Not Resolved]
  - Pyrexia [Not Recovered/Not Resolved]
  - Headache [Not Recovered/Not Resolved]
  - Muscle spasms [Not Recovered/Not Resolved]
  - Nightmare [Not Recovered/Not Resolved]
  - Sleep disorder [Not Recovered/Not Resolved]
  - Hyperhidrosis [Not Recovered/Not Resolved]
  - Asthenia [Not Recovered/Not Resolved]
  - Dizziness [Not Recovered/Not Resolved]
  - Vomiting [Not Recovered/Not Resolved]
  - Arthralgia [Not Recovered/Not Resolved]
  - Paraesthesia [Not Recovered/Not Resolved]
  - Drug interaction [Not Recovered/Not Resolved]
